FAERS Safety Report 7912463-5 (Version None)
Quarter: 2011Q4

REPORT INFORMATION
  Report Type: 
  Country: None (occurrence: None)
  Receive Date: 20111114
  Receipt Date: 20111110
  Transmission Date: 20120403
  Serious: Yes (Other)
  Sender: FDA-Public Use
  Company Number: US-PFIZER INC-2011276763

PATIENT
  Sex: Male
  Weight: 81.63 kg

DRUGS (2)
  1. LIPITOR [Concomitant]
     Indication: STENT PLACEMENT
     Dosage: 40 MG, DAILY
  2. CHANTIX [Suspect]
     Indication: SMOKING CESSATION THERAPY
     Dosage: 0.5 MG, DAILY
     Route: 048
     Dates: start: 20111027

REACTIONS (1)
  - RASH GENERALISED [None]
